FAERS Safety Report 4528611-3 (Version None)
Quarter: 2004Q4

REPORT INFORMATION
  Report Type: 
  Country: None (occurrence: None)
  Receive Date: 20041216
  Receipt Date: 20041206
  Transmission Date: 20050328
  Serious: Yes (Other)
  Sender: FDA-Public Use
  Company Number: PHFR2004GB04498

PATIENT
  Age: 23 Year
  Sex: Female

DRUGS (2)
  1. CARBAMAZEPINE [Suspect]
     Indication: BIPOLAR DISORDER
     Dosage: 600MG/DAY
     Route: 048
     Dates: start: 20020101
  2. VENLAFAXINE HCL [Suspect]
     Indication: DEPRESSION
     Dosage: 150/75MG
     Route: 048
     Dates: start: 20020601, end: 20041101

REACTIONS (4)
  - ASTHENIA [None]
  - FALL [None]
  - MYOCLONUS [None]
  - TREMOR [None]
